FAERS Safety Report 8006750-2 (Version None)
Quarter: 2011Q4

REPORT INFORMATION
  Report Type: 
  Country: None (occurrence: None)
  Receive Date: 20111227
  Receipt Date: 20111215
  Transmission Date: 20120403
  Serious: Yes (Death, Hospitalization)
  Sender: FDA-Public Use
  Company Number: AU-JNJFOC-20111013147

PATIENT
  Sex: Male
  Weight: 84 kg

DRUGS (12)
  1. ABIRATERONE ACETATE [Suspect]
     Route: 048
  2. ALANASE [Concomitant]
     Indication: THROAT IRRITATION
     Route: 065
     Dates: start: 20111020, end: 20111031
  3. ACETAMINOPHEN [Concomitant]
     Indication: PAIN
     Route: 065
     Dates: start: 20110928, end: 20111031
  4. DOMPERIDONE [Concomitant]
     Indication: PLATELET COUNT DECREASED
     Route: 065
     Dates: start: 20111026, end: 20111031
  5. CYCLIZINE [Concomitant]
     Indication: PLATELET COUNT DECREASED
     Route: 065
     Dates: start: 20111026
  6. PREDNISONE TAB [Suspect]
     Indication: PROSTATE CANCER METASTATIC
     Route: 048
     Dates: start: 20110928
  7. METOCLOPRAMIDE [Concomitant]
     Indication: PLATELET COUNT DECREASED
     Route: 065
     Dates: start: 20111026
  8. ABIRATERONE ACETATE [Suspect]
     Indication: PROSTATE CANCER METASTATIC
     Route: 048
     Dates: start: 20110928, end: 20111014
  9. RANITIDINE [Concomitant]
     Indication: GASTROOESOPHAGEAL REFLUX DISEASE
     Route: 065
     Dates: start: 20111001, end: 20111031
  10. FENTANYL [Concomitant]
     Indication: PLATELET COUNT DECREASED
     Route: 065
     Dates: start: 20111026
  11. ONDANSETRON [Concomitant]
     Indication: PLATELET COUNT DECREASED
     Route: 065
     Dates: start: 20111026, end: 20111031
  12. OMEPRAZOLE [Concomitant]
     Indication: PLATELET COUNT DECREASED
     Route: 065
     Dates: start: 20111026

REACTIONS (4)
  - THROMBOCYTOPENIA [None]
  - VOMITING [None]
  - PROSTATE CANCER METASTATIC [None]
  - PLATELET COUNT DECREASED [None]
